FAERS Safety Report 10142505 (Version 1)
Quarter: 2014Q2

REPORT INFORMATION
  Report Type: Spontaneous
  Country: CN (occurrence: CN)
  Receive Date: 20140430
  Receipt Date: 20140430
  Transmission Date: 20141212
  Serious: Yes (Life-Threatening, Other)
  Sender: FDA-Public Use
  Company Number: CN-009507513-1404CHN014566

PATIENT
  Age: 40 Year
  Sex: Female
  Weight: 44.5 kg

DRUGS (2)
  1. TIENAM [Suspect]
     Indication: INFECTION
     Dosage: UNK, TID
     Route: 041
     Dates: start: 20131207, end: 20131207
  2. SODIUM CHLORIDE [Concomitant]
     Dosage: UNK, QD
     Route: 041
     Dates: start: 20131207, end: 20131207

REACTIONS (1)
  - Anaphylactic shock [Recovering/Resolving]
